FAERS Safety Report 9636387 (Version 2)
Quarter: 2013Q4

REPORT INFORMATION
  Report Type: Spontaneous
  Country: IT (occurrence: IT)
  Receive Date: 20131021
  Receipt Date: 20131024
  Transmission Date: 20140711
  Serious: Yes (Death)
  Sender: FDA-Public Use
  Company Number: IT-PFIZER INC-2013301579

PATIENT
  Age: 80 Year
  Sex: Female

DRUGS (3)
  1. MEDROL [Suspect]
     Indication: RHEUMATOID ARTHRITIS
     Dosage: UNK
     Dates: start: 20130923
  2. ZUGLIMET [Suspect]
     Indication: DIABETES MELLITUS
     Dosage: UNK
     Dates: start: 20130923
  3. GARDENALE [Suspect]
     Indication: CONVULSION
     Dosage: UNK
     Dates: start: 20130923, end: 20131005

REACTIONS (2)
  - Epidermal necrosis [Fatal]
  - Erythema [Fatal]
